FAERS Safety Report 23987428 (Version 2)
Quarter: 2024Q3

REPORT INFORMATION
  Report Type: Spontaneous
  Country: US (occurrence: US)
  Receive Date: 20240618
  Receipt Date: 20240708
  Transmission Date: 20241017
  Serious: Yes (Other)
  Sender: VIIV
  Company Number: US-ViiV Healthcare Limited-US2024GSK072505

PATIENT

DRUGS (15)
  1. ZIDOVUDINE [Suspect]
     Active Substance: ZIDOVUDINE
     Indication: Acquired immunodeficiency syndrome
     Dosage: UNK
  2. FLUCONAZOLE [Interacting]
     Active Substance: FLUCONAZOLE
     Indication: Pneumonia cryptococcal
     Dosage: 600 MG, 1D
     Route: 048
  3. FLUCONAZOLE [Interacting]
     Active Substance: FLUCONAZOLE
     Dosage: 400 MG, 1D
     Route: 048
  4. PHENYTOIN [Interacting]
     Active Substance: PHENYTOIN
     Indication: Product used for unknown indication
     Dosage: 300 MG QAM
     Route: 048
  5. PHENYTOIN [Interacting]
     Active Substance: PHENYTOIN
     Dosage: 400 MG QAM
     Route: 048
  6. PHENYTOIN [Interacting]
     Active Substance: PHENYTOIN
     Dosage: 300 MG HS REINSTATED
     Route: 048
  7. PHENOBARBITAL [Concomitant]
     Active Substance: PHENOBARBITAL
     Indication: Product used for unknown indication
     Dosage: 60 MG QAM
     Route: 048
  8. PHENOBARBITAL [Concomitant]
     Active Substance: PHENOBARBITAL
     Dosage: 120 MG HS
     Route: 048
  9. FUROSEMIDE [Concomitant]
     Active Substance: FUROSEMIDE
     Indication: Product used for unknown indication
     Dosage: 40 MG, 1D
     Route: 048
  10. POTASSIUM CHLORIDE [Concomitant]
     Active Substance: POTASSIUM CHLORIDE
     Indication: Product used for unknown indication
     Dosage: 8 MEQ, 1D
     Route: 048
  11. ACYCLOVIR [Concomitant]
     Active Substance: ACYCLOVIR
     Indication: Product used for unknown indication
     Dosage: 200 MG, QID WHILE AWAKE
     Route: 048
  12. PENTAMIDINE [Concomitant]
     Active Substance: PENTAMIDINE
     Indication: Pneumocystis jirovecii pneumonia
     Dosage: 360 MG, 1D
     Route: 042
  13. PENTAMIDINE [Concomitant]
     Active Substance: PENTAMIDINE
     Indication: Pneumonia bacterial
  14. CEFOTAXIME [Concomitant]
     Active Substance: CEFOTAXIME SODIUM
     Indication: Pneumocystis jirovecii pneumonia
     Dosage: 2 G, TID
     Route: 042
  15. CEFOTAXIME [Concomitant]
     Active Substance: CEFOTAXIME SODIUM
     Indication: Pneumonia bacterial

REACTIONS (7)
  - Toxicity to various agents [Unknown]
  - Granulocytopenia [Unknown]
  - Dizziness [Recovered/Resolved]
  - Asthenia [Recovered/Resolved]
  - Dysarthria [Recovered/Resolved]
  - Diplopia [Recovered/Resolved]
  - Drug interaction [Unknown]
